FAERS Safety Report 13566271 (Version 1)
Quarter: 2017Q2

REPORT INFORMATION
  Report Type: Spontaneous
  Country: US (occurrence: US)
  Receive Date: 20170521
  Receipt Date: 20170521
  Transmission Date: 20170830
  Serious: No
  Sender: FDA-Public Use
  Company Number: US-PFM-2017-00239

PATIENT
  Age: 17 Month
  Sex: Female
  Weight: 10.88 kg

DRUGS (1)
  1. HEMANGEOL [Suspect]
     Active Substance: PROPRANOLOL HYDROCHLORIDE
     Indication: INFANTILE HAEMANGIOMA
     Dosage: UNK
     Route: 048
     Dates: start: 20160324, end: 20170105

REACTIONS (4)
  - Irritability [Unknown]
  - Drug administered to patient of inappropriate age [Unknown]
  - Drug dose omission [Unknown]
  - Off label use [Unknown]
